FAERS Safety Report 11828531 (Version 2)
Quarter: 2016Q4

REPORT INFORMATION
  Report Type: Spontaneous
  Country: US (occurrence: US)
  Receive Date: 20151211
  Receipt Date: 20161222
  Transmission Date: 20170206
  Serious: No
  Sender: FDA-Public Use
  Company Number: US-BAUSCH-BL-2015-004276

PATIENT
  Sex: Female

DRUGS (6)
  1. XENAZINE [Suspect]
     Active Substance: TETRABENAZINE
     Route: 048
  2. XENAZINE [Suspect]
     Active Substance: TETRABENAZINE
     Indication: TOURETTE^S DISORDER
     Route: 048
     Dates: start: 2014
  3. XENAZINE [Suspect]
     Active Substance: TETRABENAZINE
     Indication: TIC
     Route: 048
     Dates: start: 2014, end: 2014
  4. XENAZINE [Suspect]
     Active Substance: TETRABENAZINE
     Dosage: 25 MG IN THE MORNING AND 50 MG IN THE EVENING
     Route: 048
     Dates: start: 201406, end: 20151204
  5. TETRABENAZINE. [Suspect]
     Active Substance: TETRABENAZINE
     Indication: TOURETTE^S DISORDER
     Route: 065
  6. XENAZINE [Suspect]
     Active Substance: TETRABENAZINE
     Indication: HUNTINGTON^S DISEASE
     Route: 048
     Dates: start: 20140602, end: 2014

REACTIONS (4)
  - Treatment noncompliance [Not Recovered/Not Resolved]
  - Feeling abnormal [Not Recovered/Not Resolved]
  - Fatigue [Not Recovered/Not Resolved]
  - Drug ineffective [Unknown]
